FAERS Safety Report 4866973-8 (Version None)
Quarter: 2005Q4

REPORT INFORMATION
  Report Type: 
  Country: None (occurrence: None)
  Receive Date: 20051222
  Receipt Date: 20051213
  Transmission Date: 20060501
  Serious: Yes (Other)
  Sender: FDA-Public Use
  Company Number: B0403423A

PATIENT
  Age: 57 Year
  Sex: Female

DRUGS (7)
  1. LAMICTAL [Suspect]
     Indication: SIMPLE PARTIAL SEIZURES
     Dates: start: 20040201
  2. VALPROATE SODIUM [Suspect]
  3. PHENYTOIN [Concomitant]
  4. COLBAZAM [Concomitant]
  5. BACLOFEN [Concomitant]
  6. PARACETAMOL [Concomitant]
  7. LOPERAMIDE HYDROCHLORIDE [Concomitant]

REACTIONS (4)
  - ANTICONVULSANT DRUG LEVEL INCREASED [None]
  - DRUG INTERACTION POTENTIATION [None]
  - MALAISE [None]
  - PNEUMONITIS [None]
